FAERS Safety Report 17247129 (Version 2)
Quarter: 2020Q1

REPORT INFORMATION
  Report Type: Spontaneous
  Country: US (occurrence: US)
  Receive Date: 20200108
  Receipt Date: 20200109
  Transmission Date: 20200409
  Serious: No
  Sender: FDA-Public Use
  Company Number: US-PFIZER INC-2019559556

PATIENT
  Age: 43 Year
  Sex: Female

DRUGS (1)
  1. XELJANZ XR [Suspect]
     Active Substance: TOFACITINIB CITRATE
     Dosage: UNK
     Dates: start: 20191223

REACTIONS (10)
  - Secretion discharge [Unknown]
  - Nasopharyngitis [Unknown]
  - Dysphonia [Unknown]
  - Pyrexia [Unknown]
  - Nausea [Unknown]
  - Oropharyngeal pain [Unknown]
  - Fatigue [Unknown]
  - Influenza like illness [Unknown]
  - Aphonia [Unknown]
  - Laryngitis [Unknown]

NARRATIVE: CASE EVENT DATE: 20200103
